FAERS Safety Report 11411166 (Version 1)
Quarter: 2015Q3

REPORT INFORMATION
  Report Type: Spontaneous
  Country: US (occurrence: US)
  Receive Date: 20150821
  Receipt Date: 20150821
  Transmission Date: 20151125
  Serious: No
  Sender: FDA-Public Use
  Company Number: US-ELI_LILLY_AND_COMPANY-US201004002818

PATIENT
  Sex: Female

DRUGS (5)
  1. CORTICOSTEROIDS [Concomitant]
     Active Substance: CORTICOSTEROID NOS
     Dates: start: 20100408, end: 20100408
  2. ACTOS [Concomitant]
     Active Substance: PIOGLITAZONE HYDROCHLORIDE
     Dosage: 30 MG, DAILY (1/D)
     Dates: start: 2009
  3. HUMULIN R [Suspect]
     Active Substance: INSULIN HUMAN
     Dosage: UNK, AS NEEDED
     Dates: start: 201004
  4. MUSCLE RELAXANTS [Concomitant]
     Active Substance: UNSPECIFIED INGREDIENT
     Dates: start: 201001
  5. HUMULIN 70/30 [Suspect]
     Active Substance: INSULIN HUMAN
     Dosage: 50 U, EACH MORNING
     Dates: start: 2005

REACTIONS (2)
  - Blood glucose increased [Unknown]
  - Injection [Unknown]

NARRATIVE: CASE EVENT DATE: 20100408
